FAERS Safety Report 18383118 (Version 1)
Quarter: 2020Q4

REPORT INFORMATION
  Report Type: Spontaneous
  Country: FR (occurrence: FR)
  Receive Date: 20201014
  Receipt Date: 20201014
  Transmission Date: 20210114
  Serious: Yes (Hospitalization)
  Sender: FDA-Public Use
  Company Number: FR-009507513-2010FRA003538

PATIENT
  Age: 57 Year
  Sex: Female

DRUGS (1)
  1. NORSET [Suspect]
     Active Substance: MIRTAZAPINE
     Indication: DEPRESSION
     Dosage: 1 DOSAGE FORM, 1 DAY (QD)
     Route: 048
     Dates: start: 20200901, end: 20200909

REACTIONS (2)
  - Oedema peripheral [Recovering/Resolving]
  - Eyelid oedema [Recovering/Resolving]

NARRATIVE: CASE EVENT DATE: 20200901
